FAERS Safety Report 6147696-4 (Version None)
Quarter: 2009Q2

REPORT INFORMATION
  Report Type: 
  Country: None (occurrence: None)
  Receive Date: 20090408
  Receipt Date: 20090401
  Transmission Date: 20091009
  Serious: Yes (Hospitalization, Other)
  Sender: FDA-Public Use
  Company Number: PHBS2008CN06300

PATIENT
  Age: 28 Year
  Sex: Female

DRUGS (4)
  1. CYCLOSPORINE [Suspect]
     Indication: RENAL TRANSPLANT
     Route: 048
  2. AZATHIOPRINE [Concomitant]
     Indication: RENAL TRANSPLANT
     Route: 048
  3. PREDNISONE [Concomitant]
     Indication: RENAL TRANSPLANT
  4. INDAPAMIDE [Concomitant]
     Dosage: 1 TAB/ DAY

REACTIONS (9)
  - BLOOD PRESSURE INCREASED [None]
  - CAESAREAN SECTION [None]
  - DRUG EXPOSURE DURING PREGNANCY [None]
  - FOETAL HEART RATE DECELERATION [None]
  - NEPHROLITHIASIS [None]
  - PRE-ECLAMPSIA [None]
  - PREGNANCY [None]
  - PROTEIN URINE PRESENT [None]
  - URINARY TRACT INFECTION [None]
